FAERS Safety Report 16857732 (Version 2)
Quarter: 2020Q1

REPORT INFORMATION
  Report Type: Spontaneous
  Country: US (occurrence: US)
  Receive Date: 20190926
  Receipt Date: 20200313
  Transmission Date: 20200409
  Serious: No
  Sender: FDA-Public Use
  Company Number: US-TEVA-2019-US-1113827

PATIENT
  Age: 80 Year
  Sex: Female
  Weight: 87.17 kg

DRUGS (5)
  1. THEOPHYLLINE [Concomitant]
     Active Substance: THEOPHYLLINE ANHYDROUS
  2. LOSARTAN. [Concomitant]
     Active Substance: LOSARTAN
  3. QVAR REDIHALER [Suspect]
     Active Substance: BECLOMETHASONE DIPROPIONATE
     Indication: ASTHMA
     Dosage: 80 MCG TWO PUFFS TWICE DAILY
     Route: 065
  4. PROAIR HFA [Suspect]
     Active Substance: ALBUTEROL SULFATE
     Indication: ASTHMA
     Dosage: 90 MCG TWO PUFFS EVERY 4-6 HOURS AS NEEDED
     Route: 065
  5. VITAMIN A [Concomitant]
     Active Substance: VITAMIN A

REACTIONS (4)
  - Musculoskeletal pain [Unknown]
  - Arthralgia [Unknown]
  - Neck pain [Unknown]
  - Arthralgia [Recovered/Resolved]

NARRATIVE: CASE EVENT DATE: 20190131
